FAERS Safety Report 18969006 (Version 1)
Quarter: 2021Q1

REPORT INFORMATION
  Report Type: Spontaneous
  Country: CA (occurrence: CA)
  Receive Date: 20210304
  Receipt Date: 20210304
  Transmission Date: 20210420
  Serious: Yes (Other)
  Sender: FDA-Public Use
  Company Number: CA-PFIZER INC-2020338957

PATIENT
  Age: 61 Year
  Sex: Male
  Weight: 101 kg

DRUGS (5)
  1. RUXIENCE [Suspect]
     Active Substance: RITUXIMAB-PVVR
     Dosage: 799.5 MG, WEEKLY (FOR 4 WEEKS)
     Route: 042
     Dates: start: 20201104
  2. RUXIENCE [Suspect]
     Active Substance: RITUXIMAB-PVVR
     Dosage: 799.5 MG, WEEKLY (FOR 4 WEEKS)
     Route: 042
     Dates: start: 20201104
  3. RUXIENCE [Suspect]
     Active Substance: RITUXIMAB-PVVR
     Dosage: 799.5 MG, WEEKLY (FOR 4 WEEKS)
     Route: 042
     Dates: start: 20201111
  4. RUXIENCE [Suspect]
     Active Substance: RITUXIMAB-PVVR
     Indication: MICROSCOPIC POLYANGIITIS
     Dosage: 799.5 MG, WEEKLY (FOR 4 WEEKS)
     Route: 042
     Dates: start: 20201021
  5. RUXIENCE [Suspect]
     Active Substance: RITUXIMAB-PVVR
     Indication: GRANULOMATOSIS WITH POLYANGIITIS
     Dosage: 500 MG, WEEKLY (FOR 4 WEEKS)
     Route: 042

REACTIONS (6)
  - Off label use [Unknown]
  - Intentional product use issue [Unknown]
  - Hypoacusis [Unknown]
  - Blood pressure fluctuation [Unknown]
  - Off label use [Unknown]
  - Tooth disorder [Unknown]

NARRATIVE: CASE EVENT DATE: 20201021
